FAERS Safety Report 7936559-7 (Version None)
Quarter: 2011Q4

REPORT INFORMATION
  Report Type: 
  Country: None (occurrence: None)
  Receive Date: 20111123
  Receipt Date: 20111114
  Transmission Date: 20120403
  Serious: Yes (Other)
  Sender: FDA-Public Use
  Company Number: US-MYLANLABS-2011S1021625

PATIENT
  Age: 33 Year
  Sex: Male
  Weight: 113.4 kg

DRUGS (2)
  1. AMNESTEEM [Suspect]
     Indication: CYST
     Route: 048
     Dates: start: 20110809, end: 20110928
  2. AMNESTEEM [Suspect]
     Indication: FOLLICULITIS
     Route: 048
     Dates: start: 20110809, end: 20110928

REACTIONS (2)
  - DEPRESSION [None]
  - SUICIDAL IDEATION [None]
